FAERS Safety Report 8829171 (Version 1)
Quarter: 2012Q4

REPORT INFORMATION
  Report Type: 
  Country: US (occurrence: US)
  Receive Date: 20121008
  Receipt Date: 20121008
  Transmission Date: 20130627
  Serious: Yes (Other)
  Sender: FDA-Public Use
  Company Number: CHPA2012US020082

PATIENT
  Age: 55 Year
  Sex: Male

DRUGS (4)
  1. BUCKLEY^S UNKNOWN [Suspect]
     Indication: COUGH
     Dosage: 1 DF, PRN
     Route: 048
     Dates: end: 201209
  2. LIPITOR                                 /NET/ [Concomitant]
     Indication: BLOOD CHOLESTEROL
     Dosage: Unk, Unk
  3. LOPID [Concomitant]
     Dosage: Unk, Unk
  4. ACIPHEX [Concomitant]
     Dosage: Unk, Unk

REACTIONS (2)
  - Neoplasm malignant [Recovered/Resolved]
  - Off label use [Unknown]
